FAERS Safety Report 9688976 (Version 2)
Quarter: 2013Q4

REPORT INFORMATION
  Report Type: Spontaneous
  Country: US (occurrence: US)
  Receive Date: 20131114
  Receipt Date: 20131114
  Transmission Date: 20140711
  Serious: Yes (Hospitalization, Other)
  Sender: FDA-Public Use
  Company Number: US-GLAXOSMITHKLINE-B0923271A

PATIENT
  Age: 14 Year
  Sex: Female

DRUGS (3)
  1. BUPROPION [Suspect]
     Indication: PRODUCT USED FOR UNKNOWN INDICATION
     Dosage: 9G CUMULATIVE DOSE
     Route: 048
  2. HYDROXYZINE [Suspect]
     Indication: PRODUCT USED FOR UNKNOWN INDICATION
     Route: 048
  3. CITALOPRAM [Suspect]
     Indication: PRODUCT USED FOR UNKNOWN INDICATION
     Route: 048

REACTIONS (12)
  - Electrocardiogram QRS complex prolonged [Recovered/Resolved]
  - Toxicity to various agents [Recovered/Resolved]
  - Overdose [Recovered/Resolved]
  - Convulsion [Recovered/Resolved]
  - Metabolic acidosis [Recovered/Resolved]
  - Hypotension [Unknown]
  - Nodal rhythm [Unknown]
  - Pancreatitis [Recovered/Resolved]
  - Hyperlipidaemia [Recovered/Resolved]
  - Hypertriglyceridaemia [Recovered/Resolved]
  - Blood potassium decreased [Unknown]
  - Respiratory acidosis [Unknown]
